FAERS Safety Report 7198120-4 (Version None)
Quarter: 2010Q4

REPORT INFORMATION
  Report Type: 
  Country: None (occurrence: None)
  Receive Date: 20101223
  Receipt Date: 20101223
  Transmission Date: 20110411
  Serious: Yes (Life-Threatening)
  Sender: FDA-Public Use
  Company Number: None

PATIENT
  Age: 68 Year
  Sex: Female
  Weight: 79.3795 kg

DRUGS (4)
  1. PROPOXYPHENE-ACETAMINOPHEN 100-650 [Suspect]
     Indication: SCIATICA
     Dosage: 1 TABLET EVERY 4 TO 6 HRS
     Dates: start: 20101112
  2. PROPOXYPHENE-ACETAMINOPHEN 100-650 [Suspect]
     Indication: SCIATICA
     Dosage: 1 TABLET EVERY 4 TO 6 HRS
     Dates: start: 20101113
  3. PROPOXYPHENE-ACETAMINOPHEN 100-650 [Suspect]
     Indication: SCIATICA
     Dosage: 1 TABLET EVERY 4 TO 6 HRS
     Dates: start: 20101114
  4. PROPOXYPHENE-ACETAMINOPHEN 100-650 [Suspect]
     Indication: SCIATICA
     Dosage: 1 TABLET EVERY 4 TO 6 HRS
     Dates: start: 20101115

REACTIONS (2)
  - CARDIAC FLUTTER [None]
  - PRODUCT QUALITY ISSUE [None]
